FAERS Safety Report 5747790-3 (Version None)
Quarter: 2008Q2

REPORT INFORMATION
  Report Type: 
  Country: None (occurrence: None)
  Receive Date: 20080523
  Receipt Date: 20080519
  Transmission Date: 20081010
  Serious: Yes (Hospitalization)
  Sender: FDA-Public Use
  Company Number: A0728529A

PATIENT
  Sex: Female

DRUGS (12)
  1. ZOFRAN [Suspect]
     Indication: GASTROOESOPHAGEAL REFLUX DISEASE
     Dosage: 4MG THREE TIMES PER DAY
     Route: 048
  2. ONDANSETRON [Suspect]
     Indication: GASTROOESOPHAGEAL REFLUX DISEASE
     Dosage: 4MG THREE TIMES PER DAY
     Route: 048
     Dates: start: 20070101, end: 20070101
  3. PREVACID [Concomitant]
  4. PEPCID [Concomitant]
  5. DONNATAL [Concomitant]
  6. REGLAN [Concomitant]
  7. GAVISCON [Concomitant]
  8. ZITHROMAX [Concomitant]
  9. ZYRTEC [Concomitant]
  10. FLONASE [Concomitant]
  11. ALBUTEROL [Concomitant]
  12. VENOGLOBULIN [Concomitant]

REACTIONS (5)
  - ASPIRATION [None]
  - ASTHMA [None]
  - PHARMACEUTICAL PRODUCT COMPLAINT [None]
  - SINUSITIS [None]
  - VOMITING [None]
